FAERS Safety Report 4426393-7 (Version None)
Quarter: 2004Q3

REPORT INFORMATION
  Report Type: 
  Country: None (occurrence: None)
  Receive Date: 20040811
  Receipt Date: 20040722
  Transmission Date: 20050211
  Serious: Yes (Death)
  Sender: FDA-Public Use
  Company Number: EWC040740032

PATIENT
  Age: 71 Year
  Sex: Male

DRUGS (5)
  1. DOBUTAMINE (DOBUTAMINE HYDROCHLORIDE) [Suspect]
     Indication: CARDIOGENIC SHOCK
     Dosage: 0.1 UG/KG/MIN
     Dates: start: 20040412, end: 20040418
  2. ANGIOMAX [Concomitant]
  3. NORADRENALINE [Concomitant]
  4. PLAVIX [Concomitant]
  5. TASS [Concomitant]

REACTIONS (3)
  - CARDIAC OUTPUT DECREASED [None]
  - CARDIOGENIC SHOCK [None]
  - RENAL FAILURE [None]
